FAERS Safety Report 6262575-X (Version None)
Quarter: 2009Q3

REPORT INFORMATION
  Report Type: 
  Country: None (occurrence: None)
  Receive Date: 20090709
  Receipt Date: 20090702
  Transmission Date: 20100115
  Serious: Yes (Other)
  Sender: FDA-Public Use
  Company Number: US-ELI_LILLY_AND_COMPANY-US200907000480

PATIENT
  Sex: Female

DRUGS (10)
  1. HUMULIN 70/30 [Suspect]
     Dates: end: 20090601
  2. HUMALOG MIX 75/25 [Suspect]
     Dosage: 30 U, EACH MORNING
     Dates: start: 20090601
  3. HUMALOG MIX 75/25 [Suspect]
     Dosage: 15 U, EACH EVENING
  4. HUMALOG MIX 75/25 [Suspect]
     Dosage: 45 U, EACH MORNING
  5. HUMALOG MIX 75/25 [Suspect]
     Dosage: 20 U, EACH EVENING
  6. ZOLOFT [Concomitant]
  7. VERAPAMIL [Concomitant]
  8. SYNTHROID [Concomitant]
  9. ENALAPRIL [Concomitant]
  10. BACLOFEN [Concomitant]

REACTIONS (4)
  - ASTHENIA [None]
  - BLOOD GLUCOSE DECREASED [None]
  - HYPOGLYCAEMIC SEIZURE [None]
  - NERVOUSNESS [None]
